FAERS Safety Report 5052491-3 (Version None)
Quarter: 2006Q3

REPORT INFORMATION
  Report Type: 
  Country: None (occurrence: None)
  Receive Date: 20060713
  Receipt Date: 20060713
  Transmission Date: 20061208
  Serious: Yes (Other)
  Sender: FDA-Public Use
  Company Number: None

PATIENT

DRUGS (2)
  1. CYCLOPENTOLATE HYDROCHLORIDE [Suspect]
     Dosage: OPHTHALMIC
     Route: 047
  2. TROPICAMIDE [Suspect]
     Dosage: OPHTHALMIC
     Route: 047

REACTIONS (2)
  - INTERCEPTED MEDICATION ERROR [None]
  - MEDICATION ERROR [None]
